FAERS Safety Report 5129980-6 (Version None)
Quarter: 2006Q4

REPORT INFORMATION
  Report Type: 
  Country: None (occurrence: None)
  Receive Date: 20061013
  Receipt Date: 20060905
  Transmission Date: 20070319
  Serious: Yes (Death)
  Sender: FDA-Public Use
  Company Number: 2006-02289

PATIENT
  Age: 72 Year
  Sex: Male
  Weight: 76 kg

DRUGS (2)
  1. VELCADE [Suspect]
     Indication: PLASMACYTOMA
     Dosage: 2.50 MG, INTRAVENOUS
     Route: 042
     Dates: start: 20060504, end: 20060515
  2. PREDNISOLONE [Concomitant]

REACTIONS (2)
  - MALIGNANT NEOPLASM PROGRESSION [None]
  - PLASMACYTOMA [None]
